FAERS Safety Report 7198210-6 (Version None)
Quarter: 2010Q4

REPORT INFORMATION
  Report Type: 
  Country: None (occurrence: None)
  Receive Date: 20101227
  Receipt Date: 20101216
  Transmission Date: 20110411
  Serious: Yes (Hospitalization)
  Sender: FDA-Public Use
  Company Number: CA-JNJFOC-20101206812

PATIENT
  Sex: Female
  Weight: 84.8 kg

DRUGS (11)
  1. REMICADE [Suspect]
     Indication: RHEUMATOID ARTHRITIS
     Route: 042
  2. PREDNISONE [Concomitant]
     Route: 065
  3. DILTIAZEM [Concomitant]
     Route: 065
  4. LORAZEPAM [Concomitant]
     Route: 065
  5. FOLIC ACID [Concomitant]
     Route: 065
  6. LANTUS [Concomitant]
     Route: 065
  7. POTASSIUM [Concomitant]
     Route: 065
  8. VITAMIN D [Concomitant]
     Route: 065
  9. COUMADIN [Concomitant]
     Route: 065
  10. NITROGLYCERIN [Concomitant]
     Route: 065
  11. METOPROLOL TARTRATE [Concomitant]
     Route: 065

REACTIONS (4)
  - ABDOMINAL PAIN UPPER [None]
  - DECREASED APPETITE [None]
  - PANCREATIC CYST [None]
  - WEIGHT DECREASED [None]
